FAERS Safety Report 5469792-7 (Version None)
Quarter: 2007Q3

REPORT INFORMATION
  Report Type: 
  Country: None (occurrence: None)
  Receive Date: 20070927
  Receipt Date: 20070713
  Transmission Date: 20080115
  Serious: No
  Sender: FDA-Public Use
  Company Number: US-AMGEN-US233808

PATIENT
  Sex: Female

DRUGS (3)
  1. NEUPOGEN [Suspect]
     Indication: NEUTROPENIA
     Route: 065
     Dates: start: 20070501
  2. PEGASYS [Concomitant]
     Route: 065
     Dates: start: 20070211
  3. RIBAVIRIN [Concomitant]
     Dates: start: 20070211

REACTIONS (3)
  - ASTHENIA [None]
  - LOCALISED INFECTION [None]
  - PAIN [None]
